FAERS Safety Report 5043586-9 (Version None)
Quarter: 2006Q3

REPORT INFORMATION
  Report Type: 
  Country: None (occurrence: None)
  Receive Date: 20060706
  Receipt Date: 20060626
  Transmission Date: 20061208
  Serious: Yes (Other)
  Sender: FDA-Public Use
  Company Number: US-JNJFOC-20060504843

PATIENT
  Sex: Male
  Weight: 84.37 kg

DRUGS (7)
  1. REMICADE [Suspect]
     Route: 042
  2. REMICADE [Suspect]
     Indication: CROHN'S DISEASE
     Dosage: 18 INFUSIONS TO DATE
     Route: 042
  3. IMURAN [Concomitant]
  4. ASACOL [Concomitant]
  5. AVANDIA [Concomitant]
  6. LISINOPRIL [Concomitant]
  7. DOXAZOSIN [Concomitant]

REACTIONS (1)
  - TUBERCULOSIS [None]
